FAERS Safety Report 8436583-4 (Version None)
Quarter: 2012Q2

REPORT INFORMATION
  Report Type: 
  Country: None (occurrence: None)
  Receive Date: 20120614
  Receipt Date: 20120611
  Transmission Date: 20120825
  Serious: No
  Sender: FDA-Public Use
  Company Number: US-ASTRAZENECA-2004UW08205

PATIENT
  Age: 92 Year
  Sex: Female
  Weight: 86.2 kg

DRUGS (9)
  1. ATACAND [Suspect]
     Route: 048
  2. NEXIUM [Suspect]
     Indication: GASTROOESOPHAGEAL REFLUX DISEASE
     Route: 048
  3. ALTERNATIVES [Suspect]
     Route: 065
  4. GUAIFENESIN [Concomitant]
  5. AMLODIPINE BESYLATE [Concomitant]
  6. LOSARTAN POTASSIUM [Concomitant]
  7. NO DRIP NASAL SPRAY [Concomitant]
  8. CRESTOR [Suspect]
     Indication: BLOOD CHOLESTEROL INCREASED
     Route: 048
  9. OTHER MEDICATION [Suspect]
     Route: 065

REACTIONS (10)
  - ABDOMINAL PAIN UPPER [None]
  - OEDEMA PERIPHERAL [None]
  - INCORRECT DOSE ADMINISTERED [None]
  - BLOOD PRESSURE ABNORMAL [None]
  - DRUG DOSE OMISSION [None]
  - HEARING IMPAIRED [None]
  - VISION BLURRED [None]
  - GASTROOESOPHAGEAL REFLUX DISEASE [None]
  - JOINT SWELLING [None]
  - DIZZINESS [None]
